FAERS Safety Report 5851521-6 (Version None)
Quarter: 2008Q3

REPORT INFORMATION
  Report Type: 
  Country: None (occurrence: None)
  Receive Date: 20080820
  Receipt Date: 20080811
  Transmission Date: 20090109
  Serious: Yes (Death)
  Sender: FDA-Public Use
  Company Number: US-ELI_LILLY_AND_COMPANY-US200808002290

PATIENT
  Sex: Female
  Weight: 95.238 kg

DRUGS (4)
  1. PROZAC [Suspect]
     Indication: DEPRESSION
     Dosage: 40 MG, UNK
     Route: 048
     Dates: start: 20080506, end: 20080606
  2. ACTIQ [Interacting]
     Indication: PAIN
     Dosage: 800 UG, 2/D
     Route: 002
     Dates: start: 20061219, end: 20080606
  3. MORPHINE [Concomitant]
     Dosage: 15 MG, 2/D
     Dates: start: 20080605
  4. REQUIP [Concomitant]
     Dates: start: 20080605

REACTIONS (5)
  - ACCIDENTAL OVERDOSE [None]
  - DRUG INTERACTION [None]
  - DRUG TOXICITY [None]
  - PULMONARY CONGESTION [None]
  - PULMONARY OEDEMA [None]
